FAERS Safety Report 9030940 (Version 2)
Quarter: 2013Q1

REPORT INFORMATION
  Report Type: Spontaneous
  Country: US (occurrence: US)
  Receive Date: 20130123
  Receipt Date: 20130215
  Transmission Date: 20140127
  Serious: Yes (Hospitalization)
  Sender: FDA-Public Use
  Company Number: US-BAXTER-2013BAX002554

PATIENT
  Age: 65 None
  Sex: Female

DRUGS (1)
  1. DIANEAL LOW CALCIUM (ULTRABAG) [Suspect]
     Indication: PERITONEAL DIALYSIS
     Dosage: 4 EXCHANGES OF 2L EACH
     Route: 033

REACTIONS (3)
  - Diverticulitis [Recovering/Resolving]
  - Peritonitis [Recovering/Resolving]
  - Fluid overload [Recovered/Resolved]
